FAERS Safety Report 23090443 (Version 1)
Quarter: 2023Q4

REPORT INFORMATION
  Report Type: Spontaneous
  Country: US (occurrence: US)
  Receive Date: 20231020
  Receipt Date: 20231020
  Transmission Date: 20240109
  Serious: Yes (Other)
  Sender: FDA-Public Use
  Company Number: US-PFIZER INC-202300332417

PATIENT
  Age: 54 Year
  Sex: Female
  Weight: 87.54 kg

DRUGS (1)
  1. PAXLOVID [Suspect]
     Active Substance: NIRMATRELVIR\RITONAVIR
     Indication: COVID-19 treatment
     Dosage: UNK
     Dates: start: 20231012

REACTIONS (11)
  - Blood pressure increased [Unknown]
  - Blood glucose increased [Unknown]
  - Rash [Unknown]
  - Pruritus [Unknown]
  - Lymphadenitis [Unknown]
  - Headache [Unknown]
  - Peripheral swelling [Unknown]
  - Cough [Not Recovered/Not Resolved]
  - Back pain [Unknown]
  - Pulmonary pain [Unknown]
  - Pain [Unknown]
